FAERS Safety Report 6031572-1 (Version None)
Quarter: 2009Q1

REPORT INFORMATION
  Report Type: 
  Country: None (occurrence: None)
  Receive Date: 20090108
  Receipt Date: 20081226
  Transmission Date: 20090719
  Serious: Yes (Hospitalization)
  Sender: FDA-Public Use
  Company Number: JP-ELI_LILLY_AND_COMPANY-JP200812001436

PATIENT
  Age: 51 Year
  Sex: Female

DRUGS (8)
  1. ZYPREXA [Suspect]
     Indication: SCHIZOPHRENIA
     Dosage: 20 MG, DAILY (1/D)
     Route: 048
     Dates: end: 20081201
  2. ZYPREXA [Suspect]
     Dosage: 260 MG, DAILY (1/D)
     Route: 048
     Dates: start: 20081203, end: 20081203
  3. ZYPREXA [Suspect]
     Dosage: 10 MG, DAILY (1/D)
     Route: 048
     Dates: start: 20081201, end: 20081201
  4. ZYPREXA [Suspect]
     Dosage: 15 MG, DAILY (1/D)
     Route: 048
     Dates: start: 20081208
  5. ROHYPNOL [Concomitant]
     Indication: INSOMNIA
     Dosage: 1 MG, DAILY (1/D)
     Route: 048
     Dates: end: 20081203
  6. ROHYPNOL [Concomitant]
     Dosage: 1 MG, UNKNOWN
     Route: 048
  7. LORAZEPAM [Concomitant]
     Indication: INSOMNIA
     Dosage: UNK, DAILY (1/D)
     Route: 048
     Dates: end: 20081203
  8. TETRAMIDE [Concomitant]
     Indication: INSOMNIA
     Dosage: UNK, DAILY (1/D)
     Route: 048
     Dates: end: 20081203

REACTIONS (6)
  - COMA [None]
  - INTENTIONAL OVERDOSE [None]
  - MIOSIS [None]
  - PSYCHOTIC DISORDER [None]
  - SUICIDE ATTEMPT [None]
  - VOMITING [None]
